FAERS Safety Report 21223180 (Version 1)
Quarter: 2022Q3

REPORT INFORMATION
  Report Type: Spontaneous
  Country: US (occurrence: US)
  Receive Date: 20220817
  Receipt Date: 20220817
  Transmission Date: 20221027
  Serious: No
  Sender: FDA-Public Use
  Company Number: US-PFIZER INC-202201060242

PATIENT
  Age: 59 Year
  Sex: Female
  Weight: 61.23 kg

DRUGS (1)
  1. PAXLOVID [Suspect]
     Active Substance: NIRMATRELVIR\RITONAVIR
     Indication: COVID-19 treatment
     Dosage: 300MG/100MG DOSE PACK, TWO TIMES A DAY
     Dates: start: 20220812, end: 20220813

REACTIONS (5)
  - Dysgeusia [Recovered/Resolved]
  - Pruritus [Recovering/Resolving]
  - Erythema [Recovering/Resolving]
  - Feeling hot [Recovering/Resolving]
  - Rash macular [Recovering/Resolving]

NARRATIVE: CASE EVENT DATE: 20220812
